FAERS Safety Report 6301042-1 (Version None)
Quarter: 2009Q3

REPORT INFORMATION
  Report Type: 
  Country: None (occurrence: None)
  Receive Date: 20090807
  Receipt Date: 20090729
  Transmission Date: 20100115
  Serious: Yes (Hospitalization)
  Sender: FDA-Public Use
  Company Number: GB-PFIZER INC-2009247072

PATIENT
  Age: 27 Year

DRUGS (1)
  1. DEPO-PROVERA [Suspect]
     Indication: CONTRACEPTION
     Dosage: 150 MG, UNK
     Route: 030
     Dates: start: 20090424, end: 20090424

REACTIONS (3)
  - C-REACTIVE PROTEIN INCREASED [None]
  - CHEST PAIN [None]
  - PULMONARY EMBOLISM [None]
